FAERS Safety Report 6599733-0 (Version None)
Quarter: 2010Q1

REPORT INFORMATION
  Report Type: 
  Country: None (occurrence: None)
  Receive Date: 20100224
  Receipt Date: 20100216
  Transmission Date: 20100710
  Serious: Yes (Death)
  Sender: FDA-Public Use
  Company Number: TR-ELI_LILLY_AND_COMPANY-TR201002004468

PATIENT
  Sex: Female

DRUGS (4)
  1. HUMULIN R [Suspect]
     Indication: DIABETES MELLITUS
     Dosage: 14 IU, EACH MORNING
     Route: 058
     Dates: start: 20020216
  2. HUMULIN R [Suspect]
     Dosage: 14 IU, OTHER
     Route: 058
     Dates: start: 20020216
  3. HUMULIN R [Suspect]
     Dosage: 14 IU, EACH EVENING
     Route: 058
     Dates: start: 20020216
  4. CHEMOTHERAPEUTICS NOS [Concomitant]
     Indication: CHRONIC LYMPHOCYTIC LEUKAEMIA
     Dosage: UNK, UNK
     Dates: start: 19950216

REACTIONS (1)
  - CHRONIC LYMPHOCYTIC LEUKAEMIA [None]
